FAERS Safety Report 7945480-X (Version None)
Quarter: 2011Q4

REPORT INFORMATION
  Report Type: 
  Country: None (occurrence: None)
  Receive Date: 20111121
  Receipt Date: 20111114
  Transmission Date: 20120403
  Serious: Yes (Life-Threatening, Other)
  Sender: FDA-Public Use
  Company Number: 2011SP053261

PATIENT
  Age: 51 Year
  Sex: Female
  Weight: 135.6255 kg

DRUGS (2)
  1. DULERA ORAL INHALATION [Suspect]
     Indication: ASTHMA
     Dosage: 2 DF; BID; INH
     Route: 055
     Dates: start: 20110809, end: 20110812
  2. SPIRIVA [Concomitant]

REACTIONS (2)
  - RASH [None]
  - URTICARIA [None]
